FAERS Safety Report 5109347-7 (Version None)
Quarter: 2006Q3

REPORT INFORMATION
  Report Type: 
  Country: None (occurrence: None)
  Receive Date: 20060918
  Receipt Date: 20060908
  Transmission Date: 20061208
  Serious: Yes (Other)
  Sender: FDA-Public Use
  Company Number: CHPA2006US09077

PATIENT
  Age: 53 Year
  Sex: Female
  Weight: 60.3 kg

DRUGS (2)
  1. EXCEDRIN (MIGRAINE) [Suspect]
     Indication: MIGRAINE
     Dosage: 1 DF, ONCE/SINGLE, ORAL; SEE IMAGE
     Route: 048
     Dates: start: 20060101, end: 20060101
  2. EXCEDRIN (MIGRAINE) [Suspect]
     Indication: MIGRAINE
     Dosage: 1 DF, ONCE/SINGLE, ORAL; SEE IMAGE
     Route: 048
     Dates: start: 20060906, end: 20060906

REACTIONS (5)
  - ALCOHOL USE [None]
  - CHEST DISCOMFORT [None]
  - HEART RATE INCREASED [None]
  - PSYCHOTIC DISORDER [None]
  - UNDERDOSE [None]
